FAERS Safety Report 16285996 (Version 1)
Quarter: 2019Q2

REPORT INFORMATION
  Report Type: Spontaneous
  Country: US (occurrence: US)
  Receive Date: 20190508
  Receipt Date: 20190508
  Transmission Date: 20190711
  Serious: No
  Sender: FDA-Public Use
  Company Number: US-PFIZER INC-2019193310

PATIENT
  Age: 72 Year
  Sex: Male

DRUGS (3)
  1. BENZONATATE. [Suspect]
     Active Substance: BENZONATATE
  2. TAMIFLU [Interacting]
     Active Substance: OSELTAMIVIR PHOSPHATE
     Dosage: UNK
  3. XTANDI [Interacting]
     Active Substance: ENZALUTAMIDE
     Dosage: 160 MG, 1X/DAY

REACTIONS (2)
  - Drug resistance [Unknown]
  - Drug interaction [Unknown]
